FAERS Safety Report 4330312-1 (Version None)
Quarter: 2004Q2

REPORT INFORMATION
  Report Type: 
  Country: None (occurrence: None)
  Receive Date: 20040401
  Receipt Date: 20040401
  Transmission Date: 20050107
  Serious: No
  Sender: FDA-Public Use
  Company Number: None

PATIENT
  Sex: Female
  Weight: 52.1637 kg

DRUGS (1)
  1. COENZYME Q10 [Suspect]
     Indication: FIBROMYALGIA
     Dosage: 1 PER DAY ORAL
     Route: 048
     Dates: start: 20040201, end: 20040215

REACTIONS (1)
  - APHTHOUS STOMATITIS [None]
